FAERS Safety Report 12502509 (Version 2)
Quarter: 2016Q3

REPORT INFORMATION
  Report Type: Report from Study
  Country: US (occurrence: US)
  Receive Date: 20160627
  Receipt Date: 20160726
  Transmission Date: 20161109
  Serious: Yes (Hospitalization)
  Sender: FDA-Public Use
  Company Number: US-BIOGEN-2016BI00256041

PATIENT
  Age: 30 Year
  Sex: Male

DRUGS (2)
  1. TYSABRI [Suspect]
     Active Substance: NATALIZUMAB
     Indication: MULTIPLE SCLEROSIS
     Route: 042
  2. TYSABRI [Suspect]
     Active Substance: NATALIZUMAB
     Route: 042
     Dates: start: 20120718, end: 20160101

REACTIONS (4)
  - Visual evoked potentials abnormal [Unknown]
  - Seizure [Recovered/Resolved]
  - Nuclear magnetic resonance imaging spinal abnormal [Unknown]
  - Brain stem auditory evoked response abnormal [Unknown]

NARRATIVE: CASE EVENT DATE: 20151124
